FAERS Safety Report 25344049 (Version 1)
Quarter: 2025Q2

REPORT INFORMATION
  Report Type: Spontaneous
  Country: US (occurrence: US)
  Receive Date: 20250521
  Receipt Date: 20250521
  Transmission Date: 20250717
  Serious: No
  Sender: SANOFI AVENTIS
  Company Number: US-SA-2025SA144363

PATIENT
  Age: 59 Year
  Sex: Female

DRUGS (15)
  1. REZUROCK [Suspect]
     Active Substance: BELUMOSUDIL
     Indication: Chronic graft versus host disease
     Dosage: 200 MG, BID
     Route: 048
  2. PREDNISONE [Concomitant]
     Active Substance: PREDNISONE
  3. BUDESONIDE [Concomitant]
     Active Substance: BUDESONIDE
  4. PROGRAF [Concomitant]
     Active Substance: TACROLIMUS
  5. FLUCONAZOLE [Concomitant]
     Active Substance: FLUCONAZOLE
  6. ACYCLOVIR [Concomitant]
     Active Substance: ACYCLOVIR
  7. BACTRIM [Concomitant]
     Active Substance: SULFAMETHOXAZOLE\TRIMETHOPRIM
  8. ELIQUIS [Concomitant]
     Active Substance: APIXABAN
  9. BARACLUDE [Concomitant]
     Active Substance: ENTECAVIR
  10. RESTASIS [Concomitant]
     Active Substance: CYCLOSPORINE
  11. TENORMIN [Concomitant]
     Active Substance: ATENOLOL
  12. ZOFRAN [Concomitant]
     Active Substance: ONDANSETRON HYDROCHLORIDE
  13. TRAZODONE [Concomitant]
     Active Substance: TRAZODONE HYDROCHLORIDE
  14. AMLODIPINE [Concomitant]
     Active Substance: AMLODIPINE BESYLATE
  15. PROTONIX [Concomitant]
     Active Substance: PANTOPRAZOLE SODIUM

REACTIONS (2)
  - Dry eye [Unknown]
  - Abnormal sensation in eye [Unknown]
